FAERS Safety Report 23336088 (Version 2)
Quarter: 2024Q1

REPORT INFORMATION
  Report Type: Spontaneous
  Country: US (occurrence: US)
  Receive Date: 20231225
  Receipt Date: 20240104
  Transmission Date: 20240409
  Serious: Yes (Hospitalization, Other)
  Sender: FDA-Public Use
  Company Number: US-JAZZ PHARMACEUTICALS-2023-US-024995

PATIENT
  Age: 29 Year
  Sex: Female
  Weight: 79.7 kg

DRUGS (1)
  1. XYREM [Suspect]
     Active Substance: SODIUM OXYBATE
     Indication: Narcolepsy
     Dosage: UNK

REACTIONS (6)
  - Depressed level of consciousness [Recovered/Resolved]
  - Secretion discharge [Recovered/Resolved]
  - Vomiting [Recovered/Resolved]
  - Injury [Recovered/Resolved]
  - Physical assault [Recovered/Resolved]
  - Intentional product misuse [Recovered/Resolved]
